FAERS Safety Report 5800895-0 (Version None)
Quarter: 2008Q3

REPORT INFORMATION
  Report Type: 
  Country: None (occurrence: None)
  Receive Date: 20080701
  Receipt Date: 20080620
  Transmission Date: 20090109
  Serious: Yes (Life-Threatening)
  Sender: FDA-Public Use
  Company Number: 001429

PATIENT
  Age: 2 Year
  Sex: Female

DRUGS (6)
  1. BUSULFEX [Suspect]
     Indication: STEM CELL TRANSPLANT
     Dosage: 10 ML, DAILY DOSE
     Dates: start: 20070416, end: 20070419
  2. MELPHALAN (MELPHALAN) [Concomitant]
  3. CLONAZEPAM [Concomitant]
  4. NEUPOGEN [Concomitant]
  5. METHOTREXATE [Concomitant]
  6. CYCLOSPORINE [Concomitant]

REACTIONS (7)
  - ANOREXIA [None]
  - CORD BLOOD TRANSPLANT THERAPY [None]
  - ENTEROCOCCAL SEPSIS [None]
  - MALAISE [None]
  - NAUSEA [None]
  - STOMATITIS [None]
  - VOMITING [None]
